FAERS Safety Report 17616850 (Version 1)
Quarter: 2020Q2

REPORT INFORMATION
  Report Type: Spontaneous
  Country: US (occurrence: US)
  Receive Date: 20200402
  Receipt Date: 20200402
  Transmission Date: 20200713
  Serious: No
  Sender: FDA-Public Use
  Company Number: None

PATIENT
  Age: 37 Year
  Sex: Female
  Weight: 63 kg

DRUGS (15)
  1. DIAZEPAM. [Concomitant]
     Active Substance: DIAZEPAM
  2. VIT D [Concomitant]
     Active Substance: VITAMIN D NOS
  3. CYMBALTA [Suspect]
     Active Substance: DULOXETINE HYDROCHLORIDE
     Indication: FIBROMYALGIA
  4. ZOLMITRIPTAN (ZOMIG) [Concomitant]
  5. HIZENTRA [Concomitant]
     Active Substance: HUMAN IMMUNOGLOBULIN G
  6. PROMETHAZINE [Concomitant]
     Active Substance: PROMETHAZINE HYDROCHLORIDE
  7. RESTASIS [Concomitant]
     Active Substance: CYCLOSPORINE
  8. URSODIOL. [Concomitant]
     Active Substance: URSODIOL
  9. WOMEN^S DAILY VITAMIN [Concomitant]
  10. CYMBALTA [Suspect]
     Active Substance: DULOXETINE HYDROCHLORIDE
     Indication: DEPRESSION
  11. AIMOVIG [Concomitant]
     Active Substance: ERENUMAB-AOOE
  12. LINZESS [Concomitant]
     Active Substance: LINACLOTIDE
  13. SPIRONOLACTONE. [Concomitant]
     Active Substance: SPIRONOLACTONE
  14. VALCYLOVIR HCL [Concomitant]
  15. VIT B MIX [Concomitant]

REACTIONS (6)
  - Product complaint [None]
  - Depression [None]
  - Anxiety [None]
  - Feeling of despair [None]
  - Withdrawal syndrome [None]
  - Pain [None]

NARRATIVE: CASE EVENT DATE: 20200214
